FAERS Safety Report 7425391-9 (Version None)
Quarter: 2011Q2

REPORT INFORMATION
  Report Type: 
  Country: None (occurrence: None)
  Receive Date: 20110420
  Receipt Date: 20110411
  Transmission Date: 20111010
  Serious: Yes (Death, Hospitalization, Other)
  Sender: FDA-Public Use
  Company Number: GB-ELI_LILLY_AND_COMPANY-GB201103002763

PATIENT
  Age: 57 Year
  Sex: Female

DRUGS (3)
  1. VENTOLIN [Concomitant]
     Route: 055
  2. OLANZAPINE [Suspect]
     Indication: SCHIZOPHRENIA
     Dosage: 10 MG, QD
     Route: 048
     Dates: start: 20030101
  3. SERETIDE [Concomitant]
     Route: 055

REACTIONS (8)
  - MALAISE [None]
  - FATIGUE [None]
  - ASCITES [None]
  - PULMONARY HYPERTENSION [None]
  - DYSPNOEA [None]
  - SEPSIS [None]
  - UPPER RESPIRATORY TRACT INFECTION [None]
  - UNRESPONSIVE TO STIMULI [None]
